FAERS Safety Report 5046746-6 (Version None)
Quarter: 2006Q3

REPORT INFORMATION
  Report Type: 
  Country: None (occurrence: None)
  Receive Date: 20060705
  Receipt Date: 20060705
  Transmission Date: 20061208
  Serious: No
  Sender: FDA-Public Use
  Company Number: None

PATIENT
  Sex: Male
  Weight: 113.3993 kg

DRUGS (2)
  1. NICOTINE [Suspect]
     Indication: SMOKING CESSATION THERAPY
     Dosage: 21 MG QD TRANSDERMAL
     Route: 062
     Dates: start: 20060702, end: 20060703
  2. NICODERM CQ [Suspect]
     Indication: SMOKING CESSATION THERAPY
     Dosage: 21 MG QD TRANSDERMA
     Route: 062
     Dates: start: 20060618, end: 20060702

REACTIONS (3)
  - DRUG WITHDRAWAL SYNDROME [None]
  - PHARMACEUTICAL PRODUCT COMPLAINT [None]
  - THERAPEUTIC RESPONSE UNEXPECTED WITH DRUG SUBSTITUTION [None]
